FAERS Safety Report 10365738 (Version 1)
Quarter: 2014Q3

REPORT INFORMATION
  Report Type: Spontaneous
  Country: US (occurrence: None)
  Receive Date: 20140804
  Receipt Date: 20140804
  Transmission Date: 20150326
  Serious: No
  Sender: FDA-Public Use
  Company Number: None

PATIENT
  Age: 63 Year
  Sex: Female
  Weight: 108.86 kg

DRUGS (2)
  1. ATORVASTATIN [Suspect]
     Active Substance: ATORVASTATIN
     Indication: BLOOD GLUCOSE INCREASED
     Dosage: 90    ONCE DAILY  TAKEN BY MOUTH
     Route: 048
     Dates: start: 20140516, end: 20140717
  2. ATORVASTATIN [Suspect]
     Active Substance: ATORVASTATIN
     Indication: BLOOD CHOLESTEROL INCREASED
     Dosage: 90    ONCE DAILY  TAKEN BY MOUTH
     Route: 048
     Dates: start: 20140516, end: 20140717

REACTIONS (13)
  - Pruritus [None]
  - Skin ulcer [None]
  - Muscular weakness [None]
  - Rash [None]
  - Nausea [None]
  - Pain [None]
  - Headache [None]
  - Myalgia [None]
  - Musculoskeletal chest pain [None]
  - Haemorrhage [None]
  - Back pain [None]
  - Insomnia [None]
  - Swelling [None]
